FAERS Safety Report 6905290-9 (Version None)
Quarter: 2010Q3

REPORT INFORMATION
  Report Type: 
  Country: None (occurrence: None)
  Receive Date: 20100804
  Receipt Date: 20100726
  Transmission Date: 20110219
  Serious: Yes (Other)
  Sender: FDA-Public Use
  Company Number: US-JNJFOC-20100606251

PATIENT
  Age: 35 Year
  Sex: Female

DRUGS (1)
  1. NUCYNTA [Suspect]
     Indication: ANALGESIC THERAPY
     Dosage: 1 EVERY 4-6 HOURS
     Route: 048

REACTIONS (2)
  - AMNESIA [None]
  - APHASIA [None]
